FAERS Safety Report 7047019-2 (Version None)
Quarter: 2010Q4

REPORT INFORMATION
  Report Type: 
  Country: None (occurrence: None)
  Receive Date: 20101012
  Receipt Date: 20100925
  Transmission Date: 20110411
  Serious: Yes (Other)
  Sender: FDA-Public Use
  Company Number: 2010AP001904

PATIENT
  Age: 78 Year
  Sex: Female

DRUGS (2)
  1. OMEPRAZOLE [Suspect]
  2. METFORMIN HCL [Suspect]
     Dosage: 2.550 MG; QD

REACTIONS (3)
  - BLOOD HOMOCYSTEINE INCREASED [None]
  - HAEMOGLOBIN DECREASED [None]
  - VITAMIN B12 DEFICIENCY [None]
